FAERS Safety Report 8282618-1 (Version None)
Quarter: 2012Q2

REPORT INFORMATION
  Report Type: 
  Country: None (occurrence: None)
  Receive Date: 20120410
  Receipt Date: 20120326
  Transmission Date: 20120825
  Serious: Yes (Hospitalization, Other)
  Sender: FDA-Public Use
  Company Number: 2012MA003985

PATIENT
  Age: 23 Year
  Sex: Female

DRUGS (2)
  1. BENZODIAZEPINES (UNSPECIFIED) [Suspect]
     Indication: PRODUCT USED FOR UNKNOWN INDICATION
  2. OXYCODONE + ACETAMINOPHEN CAPSULES, USP 5 MG/500 MG (AMIDE) [Suspect]
     Indication: PRODUCT USED FOR UNKNOWN INDICATION

REACTIONS (15)
  - HYPERTENSION [None]
  - COMA [None]
  - OVERDOSE [None]
  - BRADYCARDIA [None]
  - INTRACRANIAL PRESSURE INCREASED [None]
  - BRAIN HERNIATION [None]
  - CONTINUOUS HAEMODIAFILTRATION [None]
  - THROMBOCYTOPENIA [None]
  - INTERNATIONAL NORMALISED RATIO INCREASED [None]
  - LIVER TRANSPLANT [None]
  - ACUTE HEPATIC FAILURE [None]
  - BRAIN OEDEMA [None]
  - MIOSIS [None]
  - RENAL FAILURE [None]
  - PUPILLARY REFLEX IMPAIRED [None]
